FAERS Safety Report 7469960-9 (Version None)
Quarter: 2011Q2

REPORT INFORMATION
  Report Type: 
  Country: None (occurrence: None)
  Receive Date: 20110510
  Receipt Date: 20110117
  Transmission Date: 20111010
  Serious: Yes (Other)
  Sender: FDA-Public Use
  Company Number: GR-ROCHE-754058

PATIENT

DRUGS (6)
  1. METHYLPEDNISOLONE SODIUM SUCCINATE [Suspect]
     Indication: LUPUS NEPHRITIS
     Route: 042
  2. METHYLPEDNISOLONE SODIUM SUCCINATE [Concomitant]
     Dosage: SUBSEQUENT DOSE TAPERING BASED ON EXTRARENAL ACTIVITY.
     Route: 048
  3. MYCOPHENOLATE MOFETIL [Suspect]
     Indication: LUPUS NEPHRITIS
     Route: 048
  4. ONDANSETRON [Concomitant]
  5. MESNA [Concomitant]
  6. CYCLOPHOSPHAMIDE [Suspect]
     Indication: LUPUS NEPHRITIS
     Dosage: DOSE: 1 GRAM/M2. INDUCTION THERAPY.
     Route: 042

REACTIONS (12)
  - INFUSION RELATED REACTION [None]
  - ALOPECIA [None]
  - AMENORRHOEA [None]
  - CYTOMEGALOVIRUS INFECTION [None]
  - BONE MARROW TOXICITY [None]
  - HERPES ZOSTER [None]
  - GASTRITIS EROSIVE [None]
  - CHLAMYDIAL INFECTION [None]
  - ABDOMINAL DISCOMFORT [None]
  - SINUSITIS [None]
  - HYPERCHOLESTEROLAEMIA [None]
  - VULVOVAGINAL MYCOTIC INFECTION [None]
